FAERS Safety Report 8999931 (Version 2)
Quarter: 2013Q4

REPORT INFORMATION
  Report Type: Spontaneous
  Country: GB (occurrence: GB)
  Receive Date: 20130102
  Receipt Date: 20131002
  Transmission Date: 20140711
  Serious: Yes (Hospitalization)
  Sender: FDA-Public Use
  Company Number: GB-PFIZER INC-2012332046

PATIENT
  Age: 79 Year
  Sex: 0

DRUGS (7)
  1. METRONIDAZOLE [Suspect]
     Dosage: UNK
     Route: 048
     Dates: start: 20100406
  2. CO-AMOXICLAV [Suspect]
     Indication: OTITIS EXTERNA
     Dosage: 625MG 3X/DAY
     Route: 048
     Dates: start: 20110204, end: 20110211
  3. PIPERACILLIN/TAZOBACTAM [Suspect]
     Dosage: 4.5 G 3X/DAY
     Route: 041
     Dates: start: 20110421, end: 20110427
  4. PHENOXYMETHYLPENICILLIN POTASSIUM [Suspect]
     Dosage: 500 MG 4X/DAY
     Route: 048
     Dates: start: 20100917
  5. FLUCLOXACILLIN [Suspect]
     Dosage: 500MG 4X/DAY
     Route: 048
     Dates: start: 20100917, end: 20100923
  6. FLUCLOXACILLIN [Suspect]
     Dosage: UNK
     Route: 042
  7. ACICLOVIR [Suspect]
     Dosage: UNK

REACTIONS (1)
  - Clostridium difficile infection [Recovered/Resolved]
